FAERS Safety Report 9265966 (Version 2)
Quarter: 2013Q2

REPORT INFORMATION
  Report Type: Spontaneous
  Country: US (occurrence: US)
  Receive Date: 20130501
  Receipt Date: 20130513
  Transmission Date: 20140414
  Serious: Yes (Hospitalization, Other)
  Sender: FDA-Public Use
  Company Number: US-FRI-1000044798

PATIENT
  Age: 76 Year
  Sex: Female
  Weight: 50.3 kg

DRUGS (15)
  1. DALIRESP [Suspect]
     Indication: CHRONIC OBSTRUCTIVE PULMONARY DISEASE
     Dosage: 500 MCG
     Route: 048
     Dates: start: 20130321, end: 20130410
  2. LORAZEPAM [Concomitant]
     Indication: ANXIETY
     Dosage: 0.5 MG Q 8 HRS PRN
     Route: 048
  3. ASPIRIN [Concomitant]
     Dosage: 81 MG
     Route: 048
  4. PRAVASTATIN [Concomitant]
     Dosage: 80 MG @ HS
     Route: 048
  5. ADVAIR [Concomitant]
     Dosage: (250 MCG/50 MCG POWDER) 1 PUFF BID
     Route: 055
  6. SPIRIVA [Concomitant]
     Dosage: 1 INHALATION DAILY
     Route: 055
  7. VENTOLIN HFA [Concomitant]
     Indication: COUGH
     Dosage: 2 PUFFS QID PRN
     Route: 055
  8. VENTOLIN HFA [Concomitant]
     Indication: WHEEZING
  9. DILTIAZEM XR [Concomitant]
     Dosage: 120 MG
     Route: 048
  10. ALBUTEROL [Concomitant]
     Dosage: (2.5 MG/3 ML) 3 ML INHALED Q 6 HRS
     Route: 055
  11. VITAMIN D3 [Concomitant]
     Dosage: 2000 IU
     Route: 048
  12. CALCIUM + VITAMIN D [Concomitant]
     Dosage: (500 MG/125 UNITS TABLET) 1 TABLET TID
     Route: 048
  13. MVI [Concomitant]
     Dosage: 1 TABLET DAILY
     Route: 048
  14. BUPROPION [Concomitant]
     Dosage: 300 MG
     Route: 048
  15. ACETAMINOPHEN + HYDROCODONE [Concomitant]
     Dosage: (325 MG/5 MG TABLET) 1-2 TABLETS Q 6 HRS PRN
     Route: 048

REACTIONS (1)
  - Volvulus [Recovered/Resolved]
